FAERS Safety Report 4750615-6 (Version None)
Quarter: 2005Q3

REPORT INFORMATION
  Report Type: 
  Country: None (occurrence: None)
  Receive Date: 20050823
  Receipt Date: 20050819
  Transmission Date: 20060218
  Serious: Yes (Hospitalization)
  Sender: FDA-Public Use
  Company Number: NL-ROCHE-414813

PATIENT
  Age: 18 Year
  Sex: Female

DRUGS (2)
  1. MYCOPHENOLATE MOFETIL [Suspect]
     Route: 048
     Dates: start: 20050329, end: 20050720
  2. FK506 [Suspect]
     Route: 048
     Dates: start: 20050329, end: 20050720

REACTIONS (1)
  - HAEMOLYTIC URAEMIC SYNDROME [None]
